FAERS Safety Report 13026934 (Version 1)
Quarter: 2016Q4

REPORT INFORMATION
  Report Type: Spontaneous
  Country: US (occurrence: US)
  Receive Date: 20161214
  Receipt Date: 20161214
  Transmission Date: 20170207
  Serious: Yes (Death)
  Sender: FDA-Public Use
  Company Number: US-PFIZER INC-2016572065

PATIENT
  Age: 73 Year
  Sex: Female
  Weight: 56 kg

DRUGS (2)
  1. FASLODEX [Concomitant]
     Active Substance: FULVESTRANT
     Indication: BREAST CANCER STAGE IV
     Dosage: 500 MG, MONTHLY, ^500MG EVERY 4 WEEKS, IM^
     Route: 030
     Dates: start: 201504, end: 201609
  2. IBRANCE [Suspect]
     Active Substance: PALBOCICLIB
     Indication: BREAST CANCER STAGE IV
     Dosage: 125 MG, CYCLIC, ^125MG BY MOUTH DAILY FOR 21 DAYS, THEN OFF FOR 7 DAYS^
     Route: 048
     Dates: start: 20160711, end: 20160831

REACTIONS (3)
  - Intentional product misuse [Unknown]
  - Pulmonary hypertension [Fatal]
  - Neoplasm progression [Fatal]
